FAERS Safety Report 4338609-6 (Version None)
Quarter: 2004Q2

REPORT INFORMATION
  Report Type: 
  Country: None (occurrence: None)
  Receive Date: 20040414
  Receipt Date: 20030411
  Transmission Date: 20050107
  Serious: Yes (Hospitalization, Disabling)
  Sender: FDA-Public Use
  Company Number: US-MERCK-0304USA01368

PATIENT
  Age: 47 Year
  Sex: Female
  Weight: 105 kg

DRUGS (19)
  1. DARVOCET-N 100 [Concomitant]
     Route: 065
  2. ALBUTEROL [Concomitant]
     Route: 065
  3. PROVENTIL [Concomitant]
     Route: 065
  4. ZITHROMAX [Concomitant]
     Route: 065
  5. ATACAND [Concomitant]
     Route: 065
     Dates: start: 20000430
  6. BIAXIN [Concomitant]
     Route: 065
  7. PREMARIN [Concomitant]
     Route: 065
  8. FLOVENT [Concomitant]
     Route: 065
  9. ADVAIR DISKUS 100/50 [Concomitant]
     Route: 065
  10. FORADIL [Concomitant]
     Route: 065
  11. FUROSEMIDE [Concomitant]
     Route: 065
  12. GUAIFENESIN [Concomitant]
     Route: 065
  13. MECLIZINE [Concomitant]
     Route: 065
  14. METHYLPREDNISOLONE [Concomitant]
     Route: 065
  15. OXYCONTIN [Concomitant]
     Indication: PAIN
     Route: 065
  16. VIOXX [Suspect]
     Indication: OSTEOARTHRITIS
     Route: 048
     Dates: start: 20000120, end: 20010827
  17. VIOXX [Suspect]
     Route: 048
  18. VIOXX [Suspect]
     Indication: INFLAMMATION
     Route: 048
     Dates: start: 20000120, end: 20010827
  19. VIOXX [Suspect]
     Route: 048

REACTIONS (18)
  - ANGINA PECTORIS [None]
  - CARDIAC MURMUR [None]
  - CHRONIC OBSTRUCTIVE AIRWAYS DISEASE [None]
  - DEPRESSION [None]
  - DIABETES MELLITUS [None]
  - EMPHYSEMA [None]
  - FATIGUE [None]
  - HYPERHIDROSIS [None]
  - HYPERTENSION [None]
  - JOINT SWELLING [None]
  - LUNG INFECTION [None]
  - MUSCLE CRAMP [None]
  - NAUSEA [None]
  - OEDEMA PERIPHERAL [None]
  - OSTEOARTHRITIS [None]
  - TRACHEOBRONCHITIS [None]
  - VENTRICULAR HYPERTROPHY [None]
  - WHEEZING [None]
